FAERS Safety Report 7184043-3 (Version None)
Quarter: 2010Q4

REPORT INFORMATION
  Report Type: 
  Country: None (occurrence: None)
  Receive Date: 20101222
  Receipt Date: 20101209
  Transmission Date: 20110411
  Serious: Yes (Hospitalization)
  Sender: FDA-Public Use
  Company Number: PHHY2010JP53681

PATIENT
  Sex: Female
  Weight: 39 kg

DRUGS (19)
  1. DIOVAN [Suspect]
     Dosage: 80 MG, BID
     Route: 048
     Dates: start: 20080422, end: 20090803
  2. BLOPRESS [Concomitant]
     Indication: HYPERTENSION
     Dosage: 12 MG
     Route: 048
     Dates: start: 20050115, end: 20080422
  3. ADALAT CC [Concomitant]
     Indication: HYPERTENSION
     Dosage: 60 MG
     Route: 048
     Dates: start: 20080422
  4. ADALAT CC [Concomitant]
     Dosage: 40 MG
     Route: 048
     Dates: end: 20090803
  5. LENDORMIN [Concomitant]
     Dosage: 0.25 MG
     Route: 048
     Dates: start: 20081008, end: 20091022
  6. DIGOXIN [Concomitant]
     Dosage: 0.125 MG
     Route: 048
     Dates: start: 20050115, end: 20090803
  7. DISOPYRAMIDE PHOSPHATE [Concomitant]
     Dosage: 300 MG
     Route: 048
     Dates: start: 20070620, end: 20080804
  8. LASIX [Concomitant]
     Dosage: 20 MG
     Route: 048
     Dates: start: 20080805
  9. LASIX [Concomitant]
     Dosage: 40 MG
     Route: 048
     Dates: end: 20091022
  10. TAKEPRON [Concomitant]
     Dosage: 15 MG
     Route: 048
     Dates: start: 20060825
  11. TAKEPRON [Concomitant]
     Dosage: 30 MG
     Route: 048
     Dates: end: 20091022
  12. PROMAC [Concomitant]
     Dosage: 150 MG
     Route: 048
     Dates: start: 20060825, end: 20080804
  13. ALOSENN [Concomitant]
     Dosage: 1 G
     Route: 048
     Dates: start: 20070620, end: 20091002
  14. ASPIRIN [Concomitant]
     Dosage: 100 MG
     Route: 048
     Dates: start: 20050205, end: 20080804
  15. ALENDRONATE SODIUM [Concomitant]
     Dosage: 35 MG
     Route: 048
     Dates: start: 20080119, end: 20080804
  16. BENET [Concomitant]
     Dosage: 17.5 MG
     Route: 048
     Dates: start: 20090313, end: 20090526
  17. VASOLATOR [Concomitant]
     Dosage: 27 MG
     Route: 062
     Dates: start: 20090821, end: 20090916
  18. NITROPEN [Concomitant]
     Dosage: 0.3 MG
     Route: 060
     Dates: start: 20090803, end: 20090803
  19. ATARAX [Concomitant]
     Dosage: 125 MG
     Route: 042

REACTIONS (5)
  - BLOOD PRESSURE DIASTOLIC DECREASED [None]
  - CARDIAC FAILURE [None]
  - CARDIAC FAILURE CHRONIC [None]
  - HYPERGLYCAEMIA [None]
  - INSOMNIA [None]
